FAERS Safety Report 8165304-8 (Version None)
Quarter: 2012Q1

REPORT INFORMATION
  Report Type: 
  Country: None (occurrence: None)
  Receive Date: 20120223
  Receipt Date: 20120223
  Transmission Date: 20120608
  Serious: Yes (Death)
  Sender: FDA-Public Use
  Company Number: None

PATIENT
  Sex: Male
  Weight: 79.3795 kg

DRUGS (4)
  1. ALLOPURINOL [Suspect]
     Indication: ARTHRALGIA
     Dosage: 300 MG DAILY 047
     Dates: start: 20120111, end: 20120125
  2. ALLOPURINOL [Suspect]
     Indication: GOUT
     Dosage: 300 MG DAILY 047
     Dates: start: 20120111, end: 20120125
  3. MELOXICAM [Suspect]
     Indication: ARTHRALGIA
     Dosage: 15 MG DAILY 047
     Dates: start: 20120111, end: 20120125
  4. MELOXICAM [Suspect]
     Indication: GOUT
     Dosage: 15 MG DAILY 047
     Dates: start: 20120111, end: 20120125

REACTIONS (15)
  - ANXIETY [None]
  - DYSPNOEA [None]
  - LOSS OF CONSCIOUSNESS [None]
  - NAUSEA [None]
  - ASTHENIA [None]
  - CONVULSION [None]
  - CONFUSIONAL STATE [None]
  - DIZZINESS [None]
  - BACK PAIN [None]
  - HEART RATE IRREGULAR [None]
  - CARDIOVASCULAR DISORDER [None]
  - ABDOMINAL DISTENSION [None]
  - VOMITING [None]
  - RESPIRATORY ARREST [None]
  - CARDIAC DISORDER [None]
